FAERS Safety Report 9256005 (Version 3)
Quarter: 2013Q3

REPORT INFORMATION
  Report Type: Spontaneous
  Country: US (occurrence: US)
  Receive Date: 20130425
  Receipt Date: 20130920
  Transmission Date: 20140515
  Serious: Yes (Hospitalization, Other)
  Sender: FDA-Public Use
  Company Number: US-SAVIENT-2013S1000024

PATIENT
  Age: 38 Year
  Sex: Male

DRUGS (1)
  1. KRYSTEXXA [Suspect]
     Indication: GOUTY TOPHUS
     Route: 042
     Dates: start: 201302

REACTIONS (11)
  - Renal failure [Unknown]
  - Jaundice [Unknown]
  - Asthenia [Unknown]
  - Malaise [Unknown]
  - Chromaturia [Unknown]
  - Ocular icterus [Unknown]
  - Arthritis bacterial [Unknown]
  - Haemolysis [Recovered/Resolved]
  - Methaemoglobinaemia [Recovered/Resolved]
  - Haemolytic anaemia [Unknown]
  - Contraindication to medical treatment [Unknown]
